FAERS Safety Report 25195654 (Version 1)
Quarter: 2025Q2

REPORT INFORMATION
  Report Type: Spontaneous
  Country: US (occurrence: US)
  Receive Date: 20250415
  Receipt Date: 20250415
  Transmission Date: 20250717
  Serious: Yes (Hospitalization, Other)
  Sender: STRIDES
  Company Number: US-STRIDES PHARMA UK LTD.-2025SP004588

PATIENT
  Age: 83 Year
  Sex: Male

DRUGS (2)
  1. PREDNISOLONE [Suspect]
     Active Substance: PREDNISOLONE
     Indication: Rheumatoid arthritis
     Route: 065
  2. NOREPINEPHRINE [Concomitant]
     Active Substance: NOREPINEPHRINE
     Indication: Vasopressive therapy
     Route: 065

REACTIONS (5)
  - Decubitus ulcer [Unknown]
  - Scedosporium infection [Unknown]
  - Brain abscess [Unknown]
  - Pneumonia necrotising [Unknown]
  - Endophthalmitis [Unknown]
